FAERS Safety Report 23359137 (Version 2)
Quarter: 2024Q1

REPORT INFORMATION
  Report Type: Spontaneous
  Country: EG (occurrence: EG)
  Receive Date: 20240102
  Receipt Date: 20240111
  Transmission Date: 20240410
  Serious: No
  Sender: FDA-Public Use
  Company Number: EG-BIOGEN-2024BI01243081

PATIENT
  Sex: Male

DRUGS (4)
  1. TYSABRI [Suspect]
     Active Substance: NATALIZUMAB
     Indication: Maternal exposure timing unspecified
     Dosage: TYSABRI IN DECEMBER-2021 OR JANUARY-2022,
     Route: 050
  2. TYSABRI [Suspect]
     Active Substance: NATALIZUMAB
     Route: 050
  3. SOLU-MEDROL [Suspect]
     Active Substance: METHYLPREDNISOLONE SODIUM SUCCINATE
     Indication: Maternal exposure timing unspecified
     Route: 050
     Dates: start: 202301
  4. MIDODRINE [Concomitant]
     Active Substance: MIDODRINE
     Indication: Hypotension
     Dosage: WHEN NEEDED
     Route: 050

REACTIONS (2)
  - Foetal exposure during pregnancy [Recovered/Resolved]
  - Exposure via breast milk [Unknown]
